FAERS Safety Report 20003926 (Version 1)
Quarter: 2021Q4

REPORT INFORMATION
  Report Type: Spontaneous
  Country: CA (occurrence: CA)
  Receive Date: 20211027
  Receipt Date: 20211027
  Transmission Date: 20220304
  Serious: Yes (Life-Threatening, Hospitalization, Other)
  Sender: FDA-Public Use
  Company Number: CA-TEVA-2021-CA-1969617

PATIENT
  Age: 14 Year
  Sex: Male
  Weight: 42 kg

DRUGS (35)
  1. CARBOPLATIN [Suspect]
     Active Substance: CARBOPLATIN
     Indication: Burkitt^s lymphoma recurrent
     Route: 041
  2. ETOPOSIDE [Suspect]
     Active Substance: ETOPOSIDE
     Indication: Burkitt^s lymphoma recurrent
     Route: 041
  3. METHOTREXATE [Suspect]
     Active Substance: METHOTREXATE
     Indication: Burkitt^s lymphoma recurrent
     Route: 037
  4. VINCRISTINE SULFATE [Suspect]
     Active Substance: VINCRISTINE SULFATE
     Indication: Burkitt^s lymphoma recurrent
     Route: 041
  5. CYCLOPHOSPHAMIDE [Suspect]
     Active Substance: CYCLOPHOSPHAMIDE
     Indication: Burkitt^s lymphoma recurrent
     Route: 041
  6. CYTARABINE [Suspect]
     Active Substance: CYTARABINE
     Indication: Burkitt^s lymphoma recurrent
     Route: 037
  7. IFOSFAMIDE [Suspect]
     Active Substance: IFOSFAMIDE
     Indication: Burkitt^s lymphoma recurrent
     Route: 041
  8. RITUXAN [Suspect]
     Active Substance: RITUXIMAB
     Indication: Burkitt^s lymphoma recurrent
     Route: 042
  9. ACYCLOVIR [Concomitant]
     Active Substance: ACYCLOVIR
  10. ALLOPURINOL [Concomitant]
     Active Substance: ALLOPURINOL
  11. CALCIUM CARBONATE\CHOLECALCIFEROL [Concomitant]
     Active Substance: CALCIUM CARBONATE\CHOLECALCIFEROL
  12. CEFOTAXIME [Concomitant]
     Active Substance: CEFOTAXIME SODIUM
  13. CHOLECALCIFEROL [Concomitant]
     Active Substance: CHOLECALCIFEROL
  14. FAMOTIDINE [Concomitant]
     Active Substance: FAMOTIDINE
  15. FASTURTEC [Concomitant]
     Active Substance: RASBURICASE
  16. FLUCONAZOLE [Concomitant]
     Active Substance: FLUCONAZOLE
  17. HYDROCORTISONE [Concomitant]
     Active Substance: HYDROCORTISONE
  18. HYDROCORTISONE [Concomitant]
     Active Substance: HYDROCORTISONE
  19. HYDROMORPHONE [Concomitant]
     Active Substance: HYDROMORPHONE
  20. LEVETIRACETAM [Concomitant]
     Active Substance: LEVETIRACETAM
     Route: 065
  21. LEVOFLOXACIN [Concomitant]
     Active Substance: LEVOFLOXACIN
  22. MAGNESIUM [Concomitant]
     Active Substance: MAGNESIUM
  23. MEROPENEM [Concomitant]
     Active Substance: MEROPENEM
  24. METHYLPREDNISOLONE [Concomitant]
     Active Substance: METHYLPREDNISOLONE
  25. MIDAZOLAM [Concomitant]
     Active Substance: MIDAZOLAM
  26. MYCAMINE [Concomitant]
     Active Substance: MICAFUNGIN SODIUM
  27. OLANZAPINE [Concomitant]
     Active Substance: OLANZAPINE
  28. ONDANSETRON [Concomitant]
     Active Substance: ONDANSETRON
  29. PHYTONADIONE [Concomitant]
     Active Substance: PHYTONADIONE
  30. PIPERACILLIN SODIUM\TAZOBACTAM SODIUM [Concomitant]
     Active Substance: PIPERACILLIN SODIUM\TAZOBACTAM SODIUM
  31. POLYETHYLENE GLYCOLS [Concomitant]
     Active Substance: POLYETHYLENE GLYCOLS
  32. POTASSIUM [Concomitant]
     Active Substance: POTASSIUM
  33. SULFAMETHOXAZOLE\TRIMETHOPRIM [Concomitant]
     Active Substance: SULFAMETHOXAZOLE\TRIMETHOPRIM
  34. VALACYCLOVIR [Concomitant]
     Active Substance: VALACYCLOVIR HYDROCHLORIDE
  35. VANCOMYCIN [Concomitant]
     Active Substance: VANCOMYCIN

REACTIONS (1)
  - Aplastic anaemia [Not Recovered/Not Resolved]
